FAERS Safety Report 7581230-7 (Version None)
Quarter: 2011Q2

REPORT INFORMATION
  Report Type: 
  Country: None (occurrence: None)
  Receive Date: 20110629
  Receipt Date: 20110620
  Transmission Date: 20111010
  Serious: Yes (Other)
  Sender: FDA-Public Use
  Company Number: PHHY2011PL56435

PATIENT
  Sex: Male
  Weight: 2.45 kg

DRUGS (3)
  1. POTASSIUM CHLORIDE [Suspect]
     Dosage: MATERNAL DOSE 2346 MG PER DAY
     Route: 064
  2. VERPAMIL HCL [Suspect]
     Dosage: MATERNAL DOSE 240 MG PER DAY
     Route: 064
  3. METHYLDOPA [Suspect]
     Dosage: MATERNAL DOSE 1500 MG PER DAY
     Route: 064

REACTIONS (3)
  - PREMATURE BABY [None]
  - BLOOD CORTISOL DECREASED [None]
  - DRUG EXPOSURE DURING PREGNANCY [None]
